FAERS Safety Report 19145303 (Version 1)
Quarter: 2021Q2

REPORT INFORMATION
  Report Type: Spontaneous
  Country: UA (occurrence: UA)
  Receive Date: 20210416
  Receipt Date: 20210416
  Transmission Date: 20210717
  Serious: Yes (Other)
  Sender: FDA-Public Use
  Company Number: UA-ROCHE-2806554

PATIENT
  Age: 34 Year
  Sex: Male

DRUGS (3)
  1. HERCEPTIN [Suspect]
     Active Substance: TRASTUZUMAB
     Indication: ADENOCARCINOMA GASTRIC
     Route: 065
  2. PEMBROLIZUMAB. [Suspect]
     Active Substance: PEMBROLIZUMAB
     Indication: PRODUCT USED FOR UNKNOWN INDICATION
     Route: 065
  3. XELODA [Suspect]
     Active Substance: CAPECITABINE
     Indication: PRODUCT USED FOR UNKNOWN INDICATION
     Route: 048

REACTIONS (13)
  - Metastases to lung [Unknown]
  - Autonomic nervous system imbalance [Unknown]
  - Anaemia [Unknown]
  - Malignant melanoma [Unknown]
  - Hepatomegaly [Unknown]
  - Adenocarcinoma [Unknown]
  - Malaise [Unknown]
  - Metastases to lymph nodes [Unknown]
  - Gastrointestinal wall thickening [Unknown]
  - Gastric neoplasm [Unknown]
  - Metastases to liver [Unknown]
  - Lymphadenopathy [Unknown]
  - Asthenia [Unknown]

NARRATIVE: CASE EVENT DATE: 202102
